FAERS Safety Report 9326923 (Version 2)
Quarter: 2013Q2

REPORT INFORMATION
  Report Type: Spontaneous
  Country: IN (occurrence: IN)
  Receive Date: 20130604
  Receipt Date: 20130607
  Transmission Date: 20140414
  Serious: Yes (Other)
  Sender: FDA-Public Use
  Company Number: PHHY2013IN054549

PATIENT
  Age: 50 Year
  Sex: Male

DRUGS (7)
  1. OFLOXACIN [Suspect]
     Indication: DIARRHOEA
     Dosage: 400 MG, BID
  2. CIPROFLOXACIN [Suspect]
     Indication: UROSEPSIS
     Route: 042
     Dates: end: 20120503
  3. GLICLAZIDE [Concomitant]
     Dosage: 80 MG, BID
  4. VILDAGLIPTIN [Concomitant]
     Dosage: 50 MG, QD
  5. METFORMIN [Concomitant]
     Dosage: 500 MG, BID
  6. TELMISARTAN [Concomitant]
     Dosage: 40 MG, QD
  7. ATORVASTATIN [Concomitant]
     Dosage: 10 MG, QHS

REACTIONS (1)
  - Hypoglycaemia [Recovered/Resolved]
